FAERS Safety Report 5591058-5 (Version None)
Quarter: 2008Q1

REPORT INFORMATION
  Report Type: 
  Country: None (occurrence: None)
  Receive Date: 20080115
  Receipt Date: 20080104
  Transmission Date: 20080703
  Serious: Yes (Hospitalization)
  Sender: FDA-Public Use
  Company Number: PHRM2008FR00497

PATIENT
  Age: 72 Year
  Sex: Male

DRUGS (2)
  1. LESCOL [Suspect]
     Dosage: 20 MG, QD
     Route: 048
     Dates: start: 20030615, end: 20060815
  2. LESCOL [Suspect]
     Route: 048

REACTIONS (1)
  - TENDON RUPTURE [None]
